FAERS Safety Report 7285825-X (Version None)
Quarter: 2011Q1

REPORT INFORMATION
  Report Type: 
  Country: None (occurrence: None)
  Receive Date: 20110210
  Receipt Date: 20110204
  Transmission Date: 20110831
  Serious: Yes (Hospitalization, Disabling)
  Sender: FDA-Public Use
  Company Number: GB-BRISTOL-MYERS SQUIBB COMPANY-15083207

PATIENT
  Age: 54 Year
  Sex: Male
  Weight: 85 kg

DRUGS (5)
  1. ALLOPURINOL [Concomitant]
     Indication: PROPHYLAXIS
     Route: 048
     Dates: start: 20100419
  2. GAVISCON [Concomitant]
     Indication: ABDOMINAL DISCOMFORT
     Route: 048
     Dates: start: 20100608, end: 20100622
  3. SPRYCEL [Suspect]
     Indication: CHRONIC MYELOID LEUKAEMIA
     Route: 048
     Dates: start: 20100419, end: 20110114
  4. VIAGRA [Concomitant]
     Indication: ERECTILE DYSFUNCTION
     Route: 048
     Dates: start: 20100101
  5. METOCLOPRAMIDE HCL [Concomitant]
     Indication: NAUSEA
     Route: 048
     Dates: start: 20100423, end: 20100425

REACTIONS (5)
  - VOMITING [None]
  - DIARRHOEA [None]
  - MITRAL VALVE INCOMPETENCE [None]
  - PYREXIA [None]
  - ANGINA PECTORIS [None]
